FAERS Safety Report 18516968 (Version 1)
Quarter: 2020Q4

REPORT INFORMATION
  Report Type: Report from Study
  Country: None (occurrence: US)
  Receive Date: 20201118
  Receipt Date: 20201118
  Transmission Date: 20210114
  Serious: Yes (Hospitalization, Other)
  Sender: FDA-Public Use
  Company Number: US-ABBVIE-18K-163-3120814-00

PATIENT
  Age: 68 Year
  Sex: Male

DRUGS (6)
  1. IMBRUVICA [Suspect]
     Active Substance: IBRUTINIB
     Indication: CHRONIC LYMPHOCYTIC LEUKAEMIA
     Dosage: 420 MG, QD
     Route: 048
     Dates: start: 201806
  2. IMBRUVICA [Suspect]
     Active Substance: IBRUTINIB
     Dosage: 420 MG, QD
     Route: 048
     Dates: start: 201807, end: 2018
  3. IMBRUVICA [Suspect]
     Active Substance: IBRUTINIB
     Dosage: 420 MG, QD
     Route: 048
     Dates: start: 20180928, end: 2018
  4. IMBRUVICA [Suspect]
     Active Substance: IBRUTINIB
     Dosage: 420 MG, QD
     Route: 048
     Dates: start: 20180825
  5. IMBRUVICA [Suspect]
     Active Substance: IBRUTINIB
     Route: 048
     Dates: start: 201806
  6. IMBRUVICA [Suspect]
     Active Substance: IBRUTINIB
     Dosage: 420 MG, QD
     Route: 048
     Dates: start: 20190513

REACTIONS (9)
  - Infusion site erythema [Unknown]
  - Benign prostatic hyperplasia [Not Recovered/Not Resolved]
  - Type 2 diabetes mellitus [Unknown]
  - Hypogammaglobulinaemia [Unknown]
  - Alopecia [Unknown]
  - Pneumonia fungal [Unknown]
  - Infusion site swelling [Unknown]
  - Thrombosis [Unknown]
  - Urinary tract infection pseudomonal [Not Recovered/Not Resolved]

NARRATIVE: CASE EVENT DATE: 20180720
